FAERS Safety Report 17246971 (Version 1)
Quarter: 2020Q1

REPORT INFORMATION
  Report Type: Spontaneous
  Country: CA (occurrence: CA)
  Receive Date: 20200108
  Receipt Date: 20200108
  Transmission Date: 20200409
  Serious: Yes (Hospitalization)
  Sender: FDA-Public Use
  Company Number: US-SLATE RUN PHARMACEUTICALS-SLTR-AE-20-2

PATIENT
  Age: 34 Year
  Sex: Female

DRUGS (3)
  1. POTASSIUM CHLORIDE ER TABLET USP [Suspect]
     Active Substance: POTASSIUM CHLORIDE
     Indication: HYPOKALAEMIA
  2. NSAID [Concomitant]
     Active Substance: UNSPECIFIED INGREDIENT
  3. METHOTREXATE. [Concomitant]
     Active Substance: METHOTREXATE

REACTIONS (7)
  - Ruptured ectopic pregnancy [Unknown]
  - Vaginal haemorrhage [Unknown]
  - Pyrexia [Recovered/Resolved]
  - Off label use [Unknown]
  - Pancytopenia [Recovered/Resolved]
  - Sepsis [Recovered/Resolved]
  - Vascular pseudoaneurysm [Unknown]
